FAERS Safety Report 20734046 (Version 2)
Quarter: 2022Q2

REPORT INFORMATION
  Report Type: Spontaneous
  Country: US (occurrence: US)
  Receive Date: 20220421
  Receipt Date: 20220504
  Transmission Date: 20220721
  Serious: Yes (Hospitalization)
  Sender: FDA-Public Use
  Company Number: US-TEVA-2022-US-2028400

PATIENT
  Age: 12 Year
  Sex: Male

DRUGS (3)
  1. FLUOXETINE [Interacting]
     Active Substance: FLUOXETINE HYDROCHLORIDE
     Indication: Autism spectrum disorder
     Dosage: 40 MILLIGRAM DAILY; HE WAS STARTED ON FLUOXETINE, WHICH WAS INCREASED TO 40 MG DAILY
     Route: 065
  2. ARIPIPRAZOLE [Interacting]
     Active Substance: ARIPIPRAZOLE
     Indication: Autism spectrum disorder
     Dosage: 2 MILLIGRAM DAILY;
     Route: 065
  3. ARIPIPRAZOLE [Interacting]
     Active Substance: ARIPIPRAZOLE
     Indication: Irritability

REACTIONS (4)
  - Hypersexuality [Recovered/Resolved]
  - Suicidal ideation [Unknown]
  - Homicidal ideation [Unknown]
  - Drug interaction [Unknown]
